FAERS Safety Report 18325343 (Version 2)
Quarter: 2020Q4

REPORT INFORMATION
  Report Type: Spontaneous
  Country: US (occurrence: US)
  Receive Date: 20200929
  Receipt Date: 20201006
  Transmission Date: 20210113
  Serious: Yes (Other)
  Sender: FDA-Public Use
  Company Number: US-TEVA-2020-US-1833001

PATIENT
  Age: 74 Year
  Sex: Female

DRUGS (2)
  1. TRANEXAMIC ACID. [Suspect]
     Active Substance: TRANEXAMIC ACID
     Indication: EPISTAXIS
     Route: 048
  2. APIXABAN [Suspect]
     Active Substance: APIXABAN
     Indication: ANTICOAGULANT THERAPY
     Dosage: 5 MILLIGRAM DAILY; 2.5 MG TWICE DAILY
     Route: 065

REACTIONS (3)
  - Epistaxis [Unknown]
  - Atrial thrombosis [Recovered/Resolved]
  - Anaemia [Unknown]
